FAERS Safety Report 8077304-7 (Version None)
Quarter: 2012Q1

REPORT INFORMATION
  Report Type: 
  Country: None (occurrence: None)
  Receive Date: 20120127
  Receipt Date: 20120116
  Transmission Date: 20120608
  Serious: Yes (Hospitalization)
  Sender: FDA-Public Use
  Company Number: US-JNJFOC-20111211068

PATIENT
  Sex: Female
  Weight: 64.2 kg

DRUGS (11)
  1. HUMIRA [Suspect]
     Indication: PRODUCT USED FOR UNKNOWN INDICATION
     Route: 065
     Dates: start: 20100114
  2. AZITHROMYCIN [Concomitant]
  3. METHOTREXATE [Suspect]
     Indication: PRODUCT USED FOR UNKNOWN INDICATION
     Route: 065
  4. PREVACID [Concomitant]
  5. MULTI-VITAMINS [Concomitant]
  6. REMICADE [Suspect]
     Indication: INFLAMMATORY BOWEL DISEASE
     Route: 042
     Dates: start: 20090416
  7. PREDNISONE TAB [Suspect]
     Indication: PRODUCT USED FOR UNKNOWN INDICATION
     Route: 065
  8. MESALAMINE [Concomitant]
     Route: 048
  9. CEPHALEXIN [Concomitant]
  10. GAVISCON [Concomitant]
  11. BUDESONIDE [Concomitant]

REACTIONS (1)
  - ABSCESS BACTERIAL [None]
